FAERS Safety Report 21546652 (Version 1)
Quarter: 2022Q4

REPORT INFORMATION
  Report Type: Spontaneous
  Country: US (occurrence: US)
  Receive Date: 20221103
  Receipt Date: 20221103
  Transmission Date: 20230113
  Serious: No
  Sender: FDA-Public Use
  Company Number: US-Hikma Pharmaceuticals USA Inc.-US-H14001-22-01632

PATIENT

DRUGS (2)
  1. BUPRENORPHINE [Suspect]
     Active Substance: BUPRENORPHINE
     Indication: Product used for unknown indication
     Dosage: 60 TABLETS A MONTH
     Route: 060
  2. BUPRENORPHINE [Suspect]
     Active Substance: BUPRENORPHINE
     Dosage: 70 TABLETS A MONTH
     Route: 060

REACTIONS (8)
  - Anxiety [Unknown]
  - Mouth ulceration [Unknown]
  - Nasal disorder [Unknown]
  - Nasal discomfort [Unknown]
  - Product use issue [Unknown]
  - Product use complaint [Unknown]
  - Product dose omission issue [Unknown]
  - Product administration error [Unknown]
